FAERS Safety Report 9349157 (Version 1)
Quarter: 2013Q2

REPORT INFORMATION
  Report Type: Spontaneous
  Country: US (occurrence: US)
  Receive Date: 20130614
  Receipt Date: 20130614
  Transmission Date: 20140414
  Serious: Yes (Hospitalization)
  Sender: FDA-Public Use
  Company Number: US-BAYER-2013-072666

PATIENT
  Age: 37 Year
  Sex: Female

DRUGS (9)
  1. YAZ [Suspect]
  2. YASMIN [Suspect]
  3. LEVOTHYROXINE [Concomitant]
     Dosage: 75 MCG DAILY
     Dates: start: 20100809
  4. LEVOTHYROXINE [Concomitant]
     Dosage: 75 MCG DAILY
     Dates: start: 20101122, end: 20110318
  5. LEVOTHYROXINE [Concomitant]
     Dosage: 50 MCG
     Dates: start: 20100716
  6. LEVOTHYROXINE [Concomitant]
     Dosage: 50 MCG
     Dates: start: 20100904, end: 20101025
  7. SYNTHROID [Concomitant]
  8. FENOFIBRATE [Concomitant]
  9. ZOCOR [Concomitant]

REACTIONS (1)
  - Acute myocardial infarction [None]
